FAERS Safety Report 18215263 (Version 2)
Quarter: 2020Q4

REPORT INFORMATION
  Report Type: Spontaneous
  Country: US (occurrence: US)
  Receive Date: 20200831
  Receipt Date: 20201218
  Transmission Date: 20210113
  Serious: Yes (Disabling, Other)
  Sender: FDA-Public Use
  Company Number: US-PURDUE-USA-2020-0163915

PATIENT
  Sex: Female

DRUGS (2)
  1. OXYCODONE HYDROCHLORIDE (SIMILAR TO NDA 22-272) [Suspect]
     Active Substance: OXYCODONE HYDROCHLORIDE
     Indication: PAIN
     Dosage: 120 30 MG, MONTHLY
     Route: 065
  2. OXYCONTIN [Suspect]
     Active Substance: OXYCODONE HYDROCHLORIDE
     Indication: PRODUCT USED FOR UNKNOWN INDICATION
     Dosage: UNK
     Route: 048

REACTIONS (19)
  - Victim of sexual abuse [Unknown]
  - Victim of abuse [Unknown]
  - Hyperhidrosis [Unknown]
  - Anxiety [Unknown]
  - Nightmare [Not Recovered/Not Resolved]
  - Vomiting [Unknown]
  - Unevaluable event [Unknown]
  - Drug dependence [Recovered/Resolved]
  - Theft [Unknown]
  - Overdose [Unknown]
  - Hepatitis C [Unknown]
  - Emotional distress [Unknown]
  - Amnesia [Unknown]
  - Nasopharyngitis [Unknown]
  - Muscle spasms [Unknown]
  - Drug tolerance [Unknown]
  - Post-traumatic stress disorder [Unknown]
  - Diarrhoea [Unknown]
  - Drug withdrawal syndrome [Unknown]
